FAERS Safety Report 8925402 (Version 4)
Quarter: 2012Q4

REPORT INFORMATION
  Report Type: 
  Country: AU (occurrence: AU)
  Receive Date: 20121126
  Receipt Date: 20121224
  Transmission Date: 20130627
  Serious: Yes (Hospitalization)
  Sender: FDA-Public Use
  Company Number: PHHY2012AU103716

PATIENT
  Age: 32 Year
  Sex: Female

DRUGS (2)
  1. CLOZARIL [Suspect]
     Dosage: UNK UKN, UNK
     Route: 048
     Dates: start: 20120706, end: 20121112
  2. CLOZARIL [Suspect]
     Dosage: UNK UKN, UNK
     Route: 048

REACTIONS (4)
  - Poor venous access [Unknown]
  - Sepsis [Unknown]
  - Leukopenia [Recovered/Resolved]
  - Neutropenia [Recovered/Resolved]
